FAERS Safety Report 24007964 (Version 3)
Quarter: 2024Q4

REPORT INFORMATION
  Report Type: Spontaneous
  Country: US (occurrence: US)
  Receive Date: 20240625
  Receipt Date: 20241009
  Transmission Date: 20250114
  Serious: No
  Sender: SANDOZ
  Company Number: US-SANDOZ-SDZ2024US059693

PATIENT
  Sex: Female

DRUGS (1)
  1. HYRIMOZ [Suspect]
     Active Substance: ADALIMUMAB-ADAZ
     Indication: Product used for unknown indication
     Dosage: 80 MG N/A DOSE EVERY N/A N/A
     Route: 003
     Dates: start: 20240620, end: 20240620

REACTIONS (2)
  - Incorrect dose administered [Unknown]
  - Needle issue [Unknown]
